FAERS Safety Report 25624747 (Version 2)
Quarter: 2025Q3

REPORT INFORMATION
  Report Type: Spontaneous
  Country: EU (occurrence: EU)
  Receive Date: 20250730
  Receipt Date: 20250812
  Transmission Date: 20251021
  Serious: Yes (Hospitalization, Other)
  Sender: JOHNSON AND JOHNSON
  Company Number: EU-JNJFOC-20250631833

PATIENT
  Age: 35 Year
  Sex: Female
  Weight: 22 kg

DRUGS (10)
  1. BOSENTAN [Suspect]
     Active Substance: BOSENTAN
     Indication: Ulcer
     Route: 048
     Dates: start: 202403
  2. CILOS [Concomitant]
     Indication: Product used for unknown indication
  3. LEVOTHYROXINE [Concomitant]
     Active Substance: LEVOTHYROXINE
     Indication: Product used for unknown indication
  4. LANSOPRAZOLE [Concomitant]
     Active Substance: LANSOPRAZOLE
     Indication: Product used for unknown indication
  5. ANTIVOM [BETAHISTINE HYDROCHLORIDE] [Concomitant]
     Indication: Product used for unknown indication
  6. INTERFERON ALFA-2A [Concomitant]
     Active Substance: INTERFERON ALFA-2A
     Indication: Product used for unknown indication
  7. LASIX [Concomitant]
     Active Substance: FUROSEMIDE
     Indication: Product used for unknown indication
  8. CANRENOATE POTASSIUM [Concomitant]
     Active Substance: CANRENOATE POTASSIUM
     Indication: Product used for unknown indication
  9. ASPIRIN [Concomitant]
     Active Substance: ASPIRIN
     Indication: Product used for unknown indication
  10. ENOXAPARIN SODIUM [Concomitant]
     Active Substance: ENOXAPARIN SODIUM
     Indication: Product used for unknown indication

REACTIONS (6)
  - Hepatic failure [Recovering/Resolving]
  - Oxygen saturation decreased [Unknown]
  - Weight decreased [Recovering/Resolving]
  - Visual impairment [Unknown]
  - Anal haemorrhage [Unknown]
  - Haematocrit decreased [Unknown]

NARRATIVE: CASE EVENT DATE: 20250601
